FAERS Safety Report 18369557 (Version 2)
Quarter: 2020Q4

REPORT INFORMATION
  Report Type: Spontaneous
  Country: US (occurrence: US)
  Receive Date: 20201012
  Receipt Date: 20201218
  Transmission Date: 20210114
  Serious: No
  Sender: FDA-Public Use
  Company Number: US-ASTRAZENECA-2020SF28811

PATIENT
  Age: 29158 Day
  Sex: Female
  Weight: 67.1 kg

DRUGS (3)
  1. PULMICORT FLEXHALER [Suspect]
     Active Substance: BUDESONIDE
     Indication: ASTHMA
     Dosage: STOPPED USING IT FOR A COUPLE OF MONTHS AND TRIED TO USE FLEXHALER AGAIN AS REQUIRED
     Route: 055
  2. PULMICORT FLEXHALER [Suspect]
     Active Substance: BUDESONIDE
     Indication: ASTHMA
     Dosage: PRESCRIBED 180 UG TWO TIMES A DAY
     Route: 055
  3. PULMICORT FLEXHALER [Suspect]
     Active Substance: BUDESONIDE
     Indication: ASTHMA
     Dosage: 180.0UG AS REQUIRED
     Route: 055
     Dates: start: 20200715

REACTIONS (6)
  - Wheezing [Recovering/Resolving]
  - Stress [Unknown]
  - Asthma [Recovering/Resolving]
  - Intentional device misuse [Unknown]
  - Seasonal allergy [Unknown]
  - Device malfunction [Unknown]

NARRATIVE: CASE EVENT DATE: 20200715
